FAERS Safety Report 9917950 (Version 2)
Quarter: 2014Q1

REPORT INFORMATION
  Report Type: Spontaneous
  Country: US (occurrence: US)
  Receive Date: 20140222
  Receipt Date: 20140222
  Transmission Date: 20141002
  Serious: Yes (Other)
  Sender: FDA-Public Use
  Company Number: US-GE HEALTHCARE MEDICAL DIAGNOSTICS-OSCN-PR-0805S-0297

PATIENT
  Age: 66 Year
  Sex: Male

DRUGS (3)
  1. OMNISCAN [Suspect]
     Indication: PRODUCT USED FOR UNKNOWN INDICATION
     Dates: start: 20050216, end: 20050216
  2. OMNISCAN [Suspect]
     Indication: FISTULOGRAM
     Dates: start: 20060523, end: 20060523
  3. OMNISCAN [Suspect]
     Dates: start: 20050223, end: 20050223

REACTIONS (1)
  - Nephrogenic systemic fibrosis [Not Recovered/Not Resolved]
